FAERS Safety Report 4786988-8 (Version None)
Quarter: 2005Q4

REPORT INFORMATION
  Report Type: 
  Country: None (occurrence: None)
  Receive Date: 20051004
  Receipt Date: 20041203
  Transmission Date: 20060501
  Serious: Yes (Other)
  Sender: FDA-Public Use
  Company Number: GB-GLAXOSMITHKLINE-B0359520A

PATIENT
  Sex: Male

DRUGS (2)
  1. SEROXAT [Suspect]
     Route: 065
  2. LANSOPRAZOLE [Concomitant]
     Dosage: 30MG UNKNOWN
     Route: 065

REACTIONS (4)
  - AGGRESSION [None]
  - COMPLETED SUICIDE [None]
  - DEPRESSED MOOD [None]
  - ILL-DEFINED DISORDER [None]
